FAERS Safety Report 25235042 (Version 1)
Quarter: 2025Q2

REPORT INFORMATION
  Report Type: Spontaneous
  Country: KR (occurrence: KR)
  Receive Date: 20250424
  Receipt Date: 20250424
  Transmission Date: 20250717
  Serious: Yes (Other)
  Sender: MYLAN
  Company Number: KR-MYLANLABS-2025M1034695

PATIENT
  Age: 62 Year
  Sex: Female

DRUGS (24)
  1. ZELDOX [Suspect]
     Active Substance: ZIPRASIDONE
     Indication: Product used for unknown indication
  2. ZELDOX [Suspect]
     Active Substance: ZIPRASIDONE
     Route: 065
  3. ZELDOX [Suspect]
     Active Substance: ZIPRASIDONE
     Route: 065
  4. ZELDOX [Suspect]
     Active Substance: ZIPRASIDONE
  5. FAMOTIDINE [Concomitant]
     Active Substance: FAMOTIDINE
  6. FAMOTIDINE [Concomitant]
     Active Substance: FAMOTIDINE
     Route: 065
  7. FAMOTIDINE [Concomitant]
     Active Substance: FAMOTIDINE
     Route: 065
  8. FAMOTIDINE [Concomitant]
     Active Substance: FAMOTIDINE
  9. LORAZEPAM [Concomitant]
     Active Substance: LORAZEPAM
  10. LORAZEPAM [Concomitant]
     Active Substance: LORAZEPAM
     Route: 065
  11. LORAZEPAM [Concomitant]
     Active Substance: LORAZEPAM
     Route: 065
  12. LORAZEPAM [Concomitant]
     Active Substance: LORAZEPAM
  13. ESCITALOPRAM OXALATE [Concomitant]
     Active Substance: ESCITALOPRAM OXALATE
  14. ESCITALOPRAM OXALATE [Concomitant]
     Active Substance: ESCITALOPRAM OXALATE
     Route: 065
  15. ESCITALOPRAM OXALATE [Concomitant]
     Active Substance: ESCITALOPRAM OXALATE
     Route: 065
  16. ESCITALOPRAM OXALATE [Concomitant]
     Active Substance: ESCITALOPRAM OXALATE
  17. ZOLPIDEM TARTRATE [Concomitant]
     Active Substance: ZOLPIDEM TARTRATE
  18. ZOLPIDEM TARTRATE [Concomitant]
     Active Substance: ZOLPIDEM TARTRATE
     Route: 065
  19. ZOLPIDEM TARTRATE [Concomitant]
     Active Substance: ZOLPIDEM TARTRATE
     Route: 065
  20. ZOLPIDEM TARTRATE [Concomitant]
     Active Substance: ZOLPIDEM TARTRATE
  21. TRAZODONE HYDROCHLORIDE [Concomitant]
     Active Substance: TRAZODONE HYDROCHLORIDE
  22. TRAZODONE HYDROCHLORIDE [Concomitant]
     Active Substance: TRAZODONE HYDROCHLORIDE
     Route: 065
  23. TRAZODONE HYDROCHLORIDE [Concomitant]
     Active Substance: TRAZODONE HYDROCHLORIDE
     Route: 065
  24. TRAZODONE HYDROCHLORIDE [Concomitant]
     Active Substance: TRAZODONE HYDROCHLORIDE

REACTIONS (1)
  - Cardiac failure [Unknown]
